FAERS Safety Report 10738938 (Version 2)
Quarter: 2015Q2

REPORT INFORMATION
  Report Type: Report from Study
  Country: US (occurrence: US)
  Receive Date: 20150126
  Receipt Date: 20150522
  Transmission Date: 20150821
  Serious: Yes (Hospitalization)
  Sender: FDA-Public Use
  Company Number: US-JNJFOC-20150114177

PATIENT
  Age: 60 Year
  Sex: Male
  Weight: 60.8 kg

DRUGS (13)
  1. RITUXIMAB [Suspect]
     Active Substance: RITUXIMAB
     Indication: MANTLE CELL LYMPHOMA
     Route: 042
     Dates: end: 201411
  2. LEVOTHYROXINE [Concomitant]
     Active Substance: LEVOTHYROXINE
     Route: 048
  3. ALLOPURINOL. [Concomitant]
     Active Substance: ALLOPURINOL
     Route: 048
  4. HYDROCORTISONE. [Concomitant]
     Active Substance: HYDROCORTISONE
     Dosage: IN THE MORNING
     Route: 048
  5. OXYCODONE [Concomitant]
     Active Substance: OXYCODONE
     Indication: PAIN
     Dosage: 5 MG, 6XHRLY, PRN
     Route: 048
  6. LACTULOSE. [Concomitant]
     Active Substance: LACTULOSE
     Route: 048
  7. IBRUTINIB [Suspect]
     Active Substance: IBRUTINIB
     Route: 048
  8. SENOKOT [Concomitant]
     Active Substance: SENNOSIDES
     Dosage: 1 TABLET, BID
     Route: 048
  9. ALPRAZOLAM. [Concomitant]
     Active Substance: ALPRAZOLAM
     Indication: ANXIETY
     Route: 048
  10. TESTOSTERONE. [Concomitant]
     Active Substance: TESTOSTERONE
     Route: 061
  11. IBRUTINIB [Suspect]
     Active Substance: IBRUTINIB
     Indication: MANTLE CELL LYMPHOMA
     Route: 048
     Dates: end: 201412
  12. ANDROGEL [Concomitant]
     Active Substance: TESTOSTERONE
     Dosage: 1 PACKET, APPLY DAILY, QD
     Route: 062
  13. TYLENOL WITH CODEINE [Concomitant]
     Active Substance: ACETAMINOPHEN\CODEINE PHOSPHATE
     Indication: PAIN
     Dosage: 1-2 TABLETS, 4XHRLY, PRN
     Route: 048

REACTIONS (1)
  - Rathke^s cleft cyst [Unknown]

NARRATIVE: CASE EVENT DATE: 20150109
